FAERS Safety Report 10218934 (Version 7)
Quarter: 2014Q4

REPORT INFORMATION
  Report Type: Spontaneous
  Country: US (occurrence: US)
  Receive Date: 20140605
  Receipt Date: 20141031
  Transmission Date: 20150528
  Serious: Yes (Hospitalization, Other)
  Sender: FDA-Public Use
  Company Number: US-BAXTER-2014BAX026727

PATIENT
  Sex: Male

DRUGS (2)
  1. DIANEAL LOW CALCIUM PERITONEAL DIALYSIS SOLUTION WITH DEXTROSE [Suspect]
     Active Substance: CALCIUM CHLORIDE\DEXTROSE\MAGNESIUM CHLORIDE\SODIUM CHLORIDE\SODIUM LACTATE
     Indication: CHRONIC KIDNEY DISEASE
     Route: 033
  2. DIANEAL LOW CALCIUM PERITONEAL DIALYSIS SOLUTION WITH DEXTROSE [Suspect]
     Active Substance: CALCIUM CHLORIDE\DEXTROSE\MAGNESIUM CHLORIDE\SODIUM CHLORIDE\SODIUM LACTATE
     Indication: CHRONIC KIDNEY DISEASE
     Route: 033

REACTIONS (14)
  - Diabetic foot infection [Unknown]
  - Poor peripheral circulation [Unknown]
  - Abasia [Recovering/Resolving]
  - Fatigue [Unknown]
  - Coronary artery occlusion [Unknown]
  - Ultrafiltration failure [Recovering/Resolving]
  - Decubitus ulcer [Recovering/Resolving]
  - Sepsis [Recovering/Resolving]
  - Sensory loss [Unknown]
  - Skin ulcer [Recovering/Resolving]
  - Joint swelling [Recovering/Resolving]
  - Asthenia [Unknown]
  - Myocardial infarction [Not Recovered/Not Resolved]
  - Burns second degree [Unknown]

NARRATIVE: CASE EVENT DATE: 20140519
